FAERS Safety Report 6739764-0 (Version None)
Quarter: 2010Q2

REPORT INFORMATION
  Report Type: 
  Country: None (occurrence: None)
  Receive Date: 20100521
  Receipt Date: 20100511
  Transmission Date: 20101027
  Serious: Yes (Hospitalization)
  Sender: FDA-Public Use
  Company Number: 009137

PATIENT
  Sex: Female
  Weight: 75 kg

DRUGS (2)
  1. CIMZIA [Suspect]
     Indication: RHEUMATOID ARTHRITIS
     Dosage: (200 MG 1X/2 WEEKS SUBCUTANEOUS)
     Route: 058
     Dates: start: 20091101, end: 20100201
  2. METHOTREXATE [Concomitant]

REACTIONS (3)
  - ALOPECIA AREATA [None]
  - PSORIASIS [None]
  - RASH PUSTULAR [None]
